FAERS Safety Report 13627513 (Version 1)
Quarter: 2017Q2

REPORT INFORMATION
  Report Type: Spontaneous
  Country: US (occurrence: US)
  Receive Date: 20170531
  Receipt Date: 20170531
  Transmission Date: 20170830
  Serious: Yes (Other)
  Sender: FDA-Public Use
  Company Number: US-ASTELLAS-1516087

PATIENT
  Sex: Female

DRUGS (3)
  1. TARCEVA [Suspect]
     Active Substance: ERLOTINIB HYDROCHLORIDE
     Indication: NEOPLASM MALIGNANT
  2. TARCEVA [Suspect]
     Active Substance: ERLOTINIB HYDROCHLORIDE
     Indication: ADENOCARCINOMA
     Route: 048
     Dates: start: 20130703, end: 20150312
  3. TARCEVA [Suspect]
     Active Substance: ERLOTINIB HYDROCHLORIDE
     Indication: NON-SMALL CELL LUNG CANCER

REACTIONS (3)
  - Pleural effusion [Not Recovered/Not Resolved]
  - Drug ineffective [Unknown]
  - Dry skin [Not Recovered/Not Resolved]
